FAERS Safety Report 7281496-7 (Version None)
Quarter: 2011Q1

REPORT INFORMATION
  Report Type: 
  Country: None (occurrence: None)
  Receive Date: 20110208
  Receipt Date: 20110126
  Transmission Date: 20110831
  Serious: Yes (Hospitalization, Disabling, Other)
  Sender: FDA-Public Use
  Company Number: PHEH2007US02887

PATIENT
  Sex: Female

DRUGS (20)
  1. MINOCYCLINE HCL [Concomitant]
     Dosage: 100MG CAPSULE
     Dates: start: 20020501
  2. AMOXICILLIN SODIUM W/CLAVULANATE POTASSIUM [Concomitant]
     Dosage: 875MG/125MG
     Dates: start: 20030701
  3. AMOXICILLIN [Concomitant]
     Dosage: 500 MG, TID
     Dates: start: 20020901
  4. AZITHROMYCIN [Concomitant]
     Dosage: TAKE 2 TABLETS THEN TAKE 1 TABLET FOR 4 MORE DAYS
     Dates: start: 20061101
  5. DEXAMETHASONE [Concomitant]
     Dosage: 4MG TAKE ONE TABLET 12HOURS PRIOR TO CHEMOTHERAPY AND 1 TABLET 12 HOURS AFTER CHEMOTHERAPY
     Dates: start: 20070701
  6. NAVELBINE [Concomitant]
  7. METROGEL [Concomitant]
     Dosage: .75% 45GM
     Dates: start: 20020501
  8. CLINDAMYCIN HYDROCHLORIDE [Concomitant]
     Dosage: 150MG TAKE ONE TABLET EVERY 6 HOURS
     Dates: start: 20070301
  9. LORAZEPAM [Concomitant]
     Dosage: 0.5MG TAKE ONE TABLET EVERY 8-12 HOURS AS NEEDED
  10. ATENOLOL [Concomitant]
  11. AREDIA [Suspect]
     Dosage: 90MG
  12. FLONASE [Concomitant]
     Dosage: 2 SPRAYS IN EACH NOSTRIL DAILY
     Dates: start: 20020501
  13. AVASTIN [Concomitant]
  14. NEUPOGEN [Concomitant]
  15. ZOMETA [Suspect]
     Indication: METASTASES TO BONE
     Dosage: 4MG EVERY 4 WEEKS
     Dates: end: 20060601
  16. PROMETHAZINE [Concomitant]
     Dosage: 25MG EVERY 6 HOURS AS NEEDED
     Dates: start: 20030701
  17. LISINOPRIL [Concomitant]
  18. TAXOL [Concomitant]
     Dosage: UNK
     Dates: start: 20010301
  19. PROCRIT                            /00909301/ [Concomitant]
  20. AMBIEN [Concomitant]

REACTIONS (22)
  - BONE DISORDER [None]
  - ATRIAL FIBRILLATION [None]
  - LOOSE TOOTH [None]
  - NEOPLASM MALIGNANT [None]
  - METASTASES TO BONE [None]
  - METASTASES TO LUNG [None]
  - CHRONIC SINUSITIS [None]
  - LUNG DISORDER [None]
  - ATELECTASIS [None]
  - METASTASES TO LIVER [None]
  - CYSTITIS [None]
  - OSTEONECROSIS OF JAW [None]
  - GENERAL PHYSICAL HEALTH DETERIORATION [None]
  - PAIN [None]
  - PERICARDIAL EFFUSION [None]
  - MALIGNANT PLEURAL EFFUSION [None]
  - ANXIETY [None]
  - TACHYCARDIA [None]
  - RESPIRATORY FAILURE [None]
  - DECREASED INTEREST [None]
  - IMPAIRED HEALING [None]
  - RETROPERITONEAL LYMPHADENOPATHY [None]
